FAERS Safety Report 4760192-1 (Version None)
Quarter: 2005Q3

REPORT INFORMATION
  Report Type: 
  Country: None (occurrence: None)
  Receive Date: 20050902
  Receipt Date: 20050818
  Transmission Date: 20060218
  Serious: Yes (Hospitalization)
  Sender: FDA-Public Use
  Company Number: US-KINGPHARMUSA00001-K200501085

PATIENT
  Age: 63 Year
  Sex: Male

DRUGS (11)
  1. ALTACE [Suspect]
     Dosage: 2.5 MG, QD
     Route: 048
     Dates: start: 20050702, end: 20050705
  2. PLAVIX [Concomitant]
     Dosage: 75 MG, QD
     Route: 048
     Dates: start: 20050101
  3. TERALITHE [Concomitant]
     Indication: BIPOLAR I DISORDER
     Dosage: 625 MG, QD
     Route: 048
     Dates: start: 19900101
  4. KARDEGIC [Concomitant]
     Dosage: 160 MG, QD
     Route: 048
     Dates: start: 20050101
  5. TAHOR [Concomitant]
     Indication: DYSLIPIDAEMIA
     Route: 048
  6. SERETIDE ^ALLEN + HANBURYS LTD^ [Concomitant]
     Indication: CHRONIC OBSTRUCTIVE PULMONARY DISEASE
     Dates: end: 20050701
  7. VENTOLIN [Concomitant]
     Indication: CHRONIC OBSTRUCTIVE PULMONARY DISEASE
     Dates: end: 20050701
  8. NICOPATCH [Concomitant]
     Indication: TOBACCO ABUSE
     Route: 062
     Dates: end: 20050701
  9. DAFALGAN [Concomitant]
     Dosage: UNK, UNK
     Route: 048
     Dates: start: 20050101, end: 20050701
  10. OMEPRAZOLE [Suspect]
     Dosage: 20 MG, QD
     Route: 048
     Dates: start: 20050101, end: 20050705
  11. ISOPTIN [Suspect]
     Dosage: 240 MG, QD
     Route: 048
     Dates: start: 20050702, end: 20050705

REACTIONS (8)
  - ANTIPSYCHOTIC DRUG LEVEL INCREASED [None]
  - BLOOD CREATININE INCREASED [None]
  - BRADYCARDIA [None]
  - HYPERHIDROSIS [None]
  - HYPOTENSION [None]
  - MALAISE [None]
  - SINOATRIAL BLOCK [None]
  - VOMITING [None]
